FAERS Safety Report 5125349-9 (Version None)
Quarter: 2006Q4

REPORT INFORMATION
  Report Type: 
  Country: None (occurrence: None)
  Receive Date: 20061011
  Receipt Date: 20061004
  Transmission Date: 20070319
  Serious: Yes (Hospitalization, Disabling)
  Sender: FDA-Public Use
  Company Number: ZA-MERCK-0610ZAF00004

PATIENT
  Age: 41 Year
  Sex: Female
  Weight: 63 kg

DRUGS (3)
  1. ZOCOR [Suspect]
     Indication: HYPERCHOLESTEROLAEMIA
     Route: 048
     Dates: start: 20060815, end: 20060821
  2. ZOCOR [Suspect]
     Route: 048
     Dates: start: 20060822, end: 20060824
  3. ZOCOR [Suspect]
     Route: 048
     Dates: start: 20060825, end: 20060922

REACTIONS (4)
  - CHEST PAIN [None]
  - DYSPNOEA EXERTIONAL [None]
  - MUSCULAR WEAKNESS [None]
  - MYALGIA [None]
